FAERS Safety Report 18957062 (Version 1)
Quarter: 2021Q1

REPORT INFORMATION
  Report Type: Spontaneous
  Country: US (occurrence: US)
  Receive Date: 20210302
  Receipt Date: 20210302
  Transmission Date: 20210420
  Serious: Yes (Hospitalization)
  Sender: FDA-Public Use
  Company Number: US-ALVOGEN-2021-ALVOGEN-116585

PATIENT
  Age: 65 Year
  Sex: Male

DRUGS (1)
  1. GRALISE [Suspect]
     Active Substance: GABAPENTIN
     Indication: PAIN
     Dosage: 600 MG STRENGTH
     Route: 048

REACTIONS (1)
  - Arthrodesis [Unknown]

NARRATIVE: CASE EVENT DATE: 20210203
